FAERS Safety Report 5343439-2 (Version None)
Quarter: 2007Q2

REPORT INFORMATION
  Report Type: 
  Country: None (occurrence: None)
  Receive Date: 20070531
  Receipt Date: 20070519
  Transmission Date: 20071010
  Serious: Yes (Other)
  Sender: FDA-Public Use
  Company Number: 2007-01623

PATIENT
  Age: 2 Year
  Sex: Female

DRUGS (1)
  1. VELCADE [Suspect]
     Indication: ACCIDENT
     Dosage: ORAL
     Route: 048
     Dates: start: 20070518, end: 20070518

REACTIONS (3)
  - ABDOMINAL PAIN [None]
  - ACCIDENTAL EXPOSURE [None]
  - VOMITING [None]
